FAERS Safety Report 4791197-2 (Version None)
Quarter: 2005Q4

REPORT INFORMATION
  Report Type: 
  Country: None (occurrence: None)
  Receive Date: 20051005
  Receipt Date: 20050923
  Transmission Date: 20060501
  Serious: Yes (Other)
  Sender: FDA-Public Use
  Company Number: 2005-DE-03971GD

PATIENT
  Age: 46 Year
  Sex: Female

DRUGS (6)
  1. OXAZEPAM [Suspect]
     Dosage: 75 MG (IN THE MORNING)
  2. DIAZEPAM [Suspect]
     Dosage: 6 MG (TID)
  3. CLOZAPINE [Suspect]
     Dosage: 175 MG
  4. HALOPERIDOL [Concomitant]
  5. IBUPROFEN [Concomitant]
  6. PANTOPRAZOLE SODIUM [Concomitant]

REACTIONS (9)
  - BLOOD PRESSURE INCREASED [None]
  - COLD SWEAT [None]
  - COMA [None]
  - DRUG LEVEL DECREASED [None]
  - HEART RATE DECREASED [None]
  - MIOSIS [None]
  - MUSCULAR WEAKNESS [None]
  - PALLOR [None]
  - SALIVARY HYPERSECRETION [None]
